FAERS Safety Report 4608437-2 (Version None)
Quarter: 2005Q1

REPORT INFORMATION
  Report Type: 
  Country: None (occurrence: None)
  Receive Date: 20050310
  Receipt Date: 20050223
  Transmission Date: 20050727
  Serious: Yes (Other)
  Sender: FDA-Public Use
  Company Number: 200510070BVD

PATIENT
  Age: 71 Year
  Sex: Female
  Weight: 66 kg

DRUGS (4)
  1. ALEVE [Suspect]
     Indication: ARTHRALGIA
     Dosage: 220 MG, TOTAL DAILY, ORAL
     Route: 048
     Dates: start: 20041202, end: 20041220
  2. ACTIVELLE [Concomitant]
  3. BELOC ZOK [Concomitant]
  4. ASPIRIN [Concomitant]

REACTIONS (2)
  - CHEST DISCOMFORT [None]
  - DYSPNOEA [None]
